FAERS Safety Report 7754551-2 (Version None)
Quarter: 2011Q3

REPORT INFORMATION
  Report Type: 
  Country: None (occurrence: None)
  Receive Date: 20110915
  Receipt Date: 20110909
  Transmission Date: 20111222
  Serious: Yes (Hospitalization, Other)
  Sender: FDA-Public Use
  Company Number: US-AMGEN-USASP2011046413

PATIENT
  Age: 38 Year
  Sex: Female

DRUGS (2)
  1. PLAQUENIL [Concomitant]
     Dosage: 1 MG, Q12H
     Dates: start: 20070101
  2. ENBREL [Suspect]
     Indication: PSORIATIC ARTHROPATHY
     Dosage: 50 MG, QWK
     Dates: start: 20100301, end: 20100501

REACTIONS (13)
  - PAIN [None]
  - SWELLING [None]
  - NERVE INJURY [None]
  - ASTHENIA [None]
  - INJECTION SITE HAEMATOMA [None]
  - MUSCULOSKELETAL PAIN [None]
  - PARAESTHESIA [None]
  - ASTHMA [None]
  - ALCOHOL USE [None]
  - PAIN IN EXTREMITY [None]
  - COMPRESSION FRACTURE [None]
  - BACK PAIN [None]
  - UPPER LIMB FRACTURE [None]
